FAERS Safety Report 22280883 (Version 2)
Quarter: 2024Q1

REPORT INFORMATION
  Report Type: Spontaneous
  Country: RU (occurrence: None)
  Receive Date: 20230503
  Receipt Date: 20240129
  Transmission Date: 20240410
  Serious: Yes (Other)
  Sender: FDA-Public Use
  Company Number: RU-ROCHE-3339656

PATIENT
  Age: 70 Year
  Sex: Male

DRUGS (5)
  1. TRASTUZUMAB [Suspect]
     Active Substance: TRASTUZUMAB
     Indication: Breast cancer
     Dosage: 6 MG/KG (8 MG/KG LOADING DOSE,  6 CYCLES
     Route: 041
     Dates: start: 20210713
  2. TRASTUZUMAB [Suspect]
     Active Substance: TRASTUZUMAB
     Dosage: THE 9TH COURSE OF TT WAS PERFORMED ON 16/NOV/2022
     Route: 041
     Dates: start: 20221116
  3. PERTUZUMAB [Suspect]
     Active Substance: PERTUZUMAB
     Indication: Breast cancer
     Dosage: 420 MG (840 MG LOADING DOSE) 6 CYCLES
     Route: 042
     Dates: start: 20210713
  4. PERTUZUMAB [Suspect]
     Active Substance: PERTUZUMAB
     Dosage: THE 9TH COURSE OF TT WAS PERFORMED ON 16/NOV/2022
     Route: 042
     Dates: start: 20221116
  5. DOCETAXEL [Suspect]
     Active Substance: DOCETAXEL\DOCETAXEL ANHYDROUS
     Indication: Breast cancer
     Dosage: DOCETAXEL 75 MG/M2 IV ON DAY 1 Q3W), 6 CYCLES
     Route: 042
     Dates: start: 20210713

REACTIONS (4)
  - Metastases to lung [Unknown]
  - Metastases to central nervous system [Unknown]
  - Inguinal hernia [Unknown]
  - Hiatus hernia [Unknown]

NARRATIVE: CASE EVENT DATE: 20220530
